FAERS Safety Report 8799180 (Version 1)
Quarter: 2012Q4

REPORT INFORMATION
  Report Type: 
  Country: US (occurrence: US)
  Receive Date: 20120920
  Receipt Date: 20120920
  Transmission Date: 20130627
  Serious: No
  Sender: FDA-Public Use
  Company Number: US-ASTRAZENECA-2012SE17895

PATIENT
  Age: 52 Year
  Sex: Male
  Weight: 74.8 kg

DRUGS (2)
  1. LISINOPRIL [Suspect]
     Route: 048
  2. SEROQUEL [Suspect]
     Indication: BIPOLAR DISORDER
     Route: 048
     Dates: start: 2010

REACTIONS (2)
  - Asthenia [Unknown]
  - Irritability [Unknown]
